FAERS Safety Report 5808910-5 (Version None)
Quarter: 2008Q3

REPORT INFORMATION
  Report Type: 
  Country: None (occurrence: None)
  Receive Date: 20080714
  Receipt Date: 20080703
  Transmission Date: 20090109
  Serious: Yes (Hospitalization)
  Sender: FDA-Public Use
  Company Number: CM-MERCK-0807USA00711

PATIENT
  Age: 35 Year
  Sex: Male

DRUGS (1)
  1. STROMECTOL [Suspect]
     Indication: ONCHOCERCIASIS
     Route: 048
     Dates: start: 20080625

REACTIONS (6)
  - ABNORMAL BEHAVIOUR [None]
  - ASTHENIA [None]
  - COMA [None]
  - CONJUNCTIVAL HAEMORRHAGE [None]
  - PYREXIA [None]
  - URINARY INCONTINENCE [None]
